FAERS Safety Report 15694044 (Version 1)
Quarter: 2018Q4

REPORT INFORMATION
  Report Type: Spontaneous
  Country: US (occurrence: US)
  Receive Date: 20181206
  Receipt Date: 20181206
  Transmission Date: 20190205
  Serious: No
  Sender: FDA-Public Use
  Company Number: US-MYLANLABS-2018M1087825

PATIENT
  Sex: Male
  Weight: 93 kg

DRUGS (1)
  1. LIDOCAINE PATCH [Suspect]
     Active Substance: LIDOCAINE
     Indication: PAIN
     Route: 003
     Dates: start: 20181120

REACTIONS (4)
  - Product adhesion issue [Not Recovered/Not Resolved]
  - Off label use [Recovering/Resolving]
  - Product storage error [Recovered/Resolved]
  - Product quality issue [Unknown]
